FAERS Safety Report 14528945 (Version 1)
Quarter: 2018Q1

REPORT INFORMATION
  Report Type: Spontaneous
  Country: US (occurrence: US)
  Receive Date: 20180214
  Receipt Date: 20180214
  Transmission Date: 20180509
  Serious: No
  Sender: FDA-Public Use
  Company Number: US-VIFOR (INTERNATIONAL) INC.-VIT-2018-00858

PATIENT
  Age: 59 Year
  Sex: Female
  Weight: 54 kg

DRUGS (19)
  1. NEPHRO VITE RX [Concomitant]
     Active Substance: ASCORBIC ACID\BIOTIN\CALCIUM PANTOTHENATE\CYANOCOBALAMIN\FOLIC ACID\NIACINAMIDE\PYRIDOXINE HYDROCHLORIDE\RIBOFLAVIN\THIAMINE MONONITRATE
     Dates: start: 20170927
  2. HYDRALAZINE [Concomitant]
     Active Substance: HYDRALAZINE HYDROCHLORIDE
     Dates: start: 20170909
  3. CALCITRIOL. [Concomitant]
     Active Substance: CALCITRIOL
     Dates: start: 20161028
  4. MIRCERA [Suspect]
     Active Substance: METHOXY POLYETHYLENE GLYCOL-EPOETIN BETA
     Dates: start: 20171129
  5. ONDANSETRON [Concomitant]
     Active Substance: ONDANSETRON
     Dates: start: 20170909
  6. RANITIDINE. [Concomitant]
     Active Substance: RANITIDINE
     Dates: start: 20170909
  7. LYRICA [Concomitant]
     Active Substance: PREGABALIN
     Dates: start: 20170201
  8. MIRCERA [Suspect]
     Active Substance: METHOXY POLYETHYLENE GLYCOL-EPOETIN BETA
     Indication: PRODUCT USED FOR UNKNOWN INDICATION
     Dates: start: 20171113
  9. PHENYTOIN. [Concomitant]
     Active Substance: PHENYTOIN
     Dates: start: 20171228
  10. CLONIDINE. [Concomitant]
     Active Substance: CLONIDINE
     Dates: start: 20171208
  11. RENVELA [Concomitant]
     Active Substance: SEVELAMER CARBONATE
     Dates: start: 20171103
  12. ALPRAZOLAM. [Concomitant]
     Active Substance: ALPRAZOLAM
     Dates: start: 20170909
  13. PHENYTOIN. [Concomitant]
     Active Substance: PHENYTOIN
     Dates: start: 20150502
  14. MIRCERA [Suspect]
     Active Substance: METHOXY POLYETHYLENE GLYCOL-EPOETIN BETA
     Dates: start: 20171122
  15. NIFEDIPINE. [Concomitant]
     Active Substance: NIFEDIPINE
     Dates: start: 20180110
  16. LABETALOL [Concomitant]
     Active Substance: LABETALOL\LABETALOL HYDROCHLORIDE
     Dates: start: 20170920
  17. COLECALCIFEROL [Concomitant]
     Active Substance: CHOLECALCIFEROL
     Dates: start: 20170909
  18. CLONIDINE. [Concomitant]
     Active Substance: CLONIDINE
     Dates: start: 20170909
  19. DOXAZOSIN [Concomitant]
     Active Substance: DOXAZOSIN\DOXAZOSIN MESYLATE
     Dates: start: 20170909

REACTIONS (2)
  - No adverse event [Unknown]
  - Inappropriate schedule of drug administration [Recovered/Resolved]
